FAERS Safety Report 4825531-1 (Version None)
Quarter: 2005Q4

REPORT INFORMATION
  Report Type: 
  Country: None (occurrence: None)
  Receive Date: 20051111
  Receipt Date: 20050815
  Transmission Date: 20060501
  Serious: No
  Sender: FDA-Public Use
  Company Number: US-GLAXOSMITHKLINE-A0570249A

PATIENT
  Age: 77 Year
  Sex: Male

DRUGS (4)
  1. AVODART [Suspect]
     Indication: BENIGN PROSTATIC HYPERPLASIA
     Dosage: .5MG PER DAY
     Route: 048
  2. TRAVATAN [Concomitant]
  3. ADVIL [Concomitant]
  4. AMBIEN [Concomitant]

REACTIONS (3)
  - ALOPECIA [None]
  - DYSPNOEA [None]
  - HAIR TEXTURE ABNORMAL [None]
